FAERS Safety Report 9373779 (Version 2)
Quarter: 2013Q3

REPORT INFORMATION
  Report Type: Spontaneous
  Country: CO (occurrence: CO)
  Receive Date: 20130628
  Receipt Date: 20130704
  Transmission Date: 20140515
  Serious: Yes (Other)
  Sender: FDA-Public Use
  Company Number: CO-AMGEN-COLSP2013033294

PATIENT
  Age: 58 Year
  Sex: Female

DRUGS (12)
  1. ENBREL [Suspect]
     Indication: ANKYLOSING SPONDYLITIS
     Dosage: 50 MG, WEEKLY
     Route: 058
     Dates: start: 201209, end: 201301
  2. ENBREL [Suspect]
     Dosage: UNK
  3. HYDROCHLOROTHIAZIDE [Concomitant]
     Indication: PROPHYLAXIS
     Dosage: 25 MG, 1X/DAY
     Route: 048
     Dates: start: 2003
  4. HYDROCHLOROTHIAZIDE [Concomitant]
     Indication: ANKYLOSING SPONDYLITIS
     Dosage: UNK
  5. OMEPRAZOL                          /00661201/ [Concomitant]
     Indication: GASTRITIS
     Dosage: 20 MG, 1X/DAY
     Route: 048
     Dates: start: 1977
  6. DICLOFENAC [Concomitant]
     Indication: ANKYLOSING SPONDYLITIS
     Dosage: EACH 8 HOURS
     Route: 048
     Dates: start: 2012, end: 201211
  7. SULFASALAZINE [Concomitant]
     Indication: ANKYLOSING SPONDYLITIS
     Dosage: 500 MG, 4X/DAY
     Route: 048
     Dates: start: 2012
  8. FOLIC ACID [Concomitant]
     Indication: ANKYLOSING SPONDYLITIS
     Dosage: 1 MG, 1X/DAY
     Route: 048
     Dates: start: 2012
  9. THYROXINE [Concomitant]
     Indication: ANKYLOSING SPONDYLITIS
     Dosage: 50 MG, 1X/DAY
     Route: 048
     Dates: start: 2012
  10. LOSARTAN [Concomitant]
     Indication: HYPERTENSION
     Dosage: 50 MG, 2X/DAY
     Dates: start: 2003
  11. CALCIUM WITH VITAMIN D             /01233101/ [Concomitant]
     Indication: ANKYLOSING SPONDYLITIS
     Dosage: 600+200 MG, 1X/DAY
     Route: 048
  12. PIROXICAM [Concomitant]
     Indication: ANKYLOSING SPONDYLITIS
     Dosage: 50 MG, 1X/DAY
     Route: 048

REACTIONS (11)
  - Immunodeficiency [Unknown]
  - Headache [Not Recovered/Not Resolved]
  - Arthralgia [Unknown]
  - Alopecia [Not Recovered/Not Resolved]
  - Quality of life decreased [Unknown]
  - Pain in extremity [Not Recovered/Not Resolved]
  - Local swelling [Not Recovered/Not Resolved]
  - Nasopharyngitis [Unknown]
  - Influenza [Not Recovered/Not Resolved]
  - Injection site swelling [Unknown]
  - Hypersensitivity [Not Recovered/Not Resolved]
